FAERS Safety Report 4595144-8 (Version None)
Quarter: 2005Q1

REPORT INFORMATION
  Report Type: 
  Country: None (occurrence: None)
  Receive Date: 20050224
  Receipt Date: 20040331
  Transmission Date: 20050727
  Serious: Yes (Other)
  Sender: FDA-Public Use
  Company Number: GXKR2004US00734

PATIENT
  Age: 75 Year
  Sex: Male

DRUGS (6)
  1. LISINOPRIL [Suspect]
     Indication: HYPERTENSION
  2. LIPITOR [Concomitant]
  3. COREG [Concomitant]
  4. ASPIRIN [Concomitant]
  5. NITRO PATCH (GLYCERYL TRINITRATE) [Concomitant]
  6. HYOSCYAMINE (HYOSCYAMINE) [Concomitant]

REACTIONS (4)
  - LYMPHOMATOID PAPULOSIS [None]
  - MYCOSIS FUNGOIDES [None]
  - PSEUDO LYMPHOMA [None]
  - RASH GENERALISED [None]
